FAERS Safety Report 5720932-1 (Version None)
Quarter: 2008Q2

REPORT INFORMATION
  Report Type: 
  Country: None (occurrence: None)
  Receive Date: 20080424
  Receipt Date: 20080418
  Transmission Date: 20081010
  Serious: Yes (Other)
  Sender: FDA-Public Use
  Company Number: CLOF-1000147

PATIENT
  Age: 60 Year
  Sex: Male
  Weight: 89.5 kg

DRUGS (21)
  1. CLOLAR [Suspect]
     Indication: MYELODYSPLASTIC SYNDROME
     Dosage: 40 MG/M2, QDX5, INTRAVENOUS
     Route: 042
     Dates: start: 20080318, end: 20080322
  2. CYTARABINE (CYTARABINE) SOLUTION FOR INFUSION [Suspect]
     Indication: MYELODYSPLASTIC SYNDROME
     Dosage: 1 G/M2, QDX5, INTRAVENOUS
     Route: 042
     Dates: start: 20080318, end: 20080322
  3. THYMOGLOBULINE (ANTITHYMOCYTE IMMUNOGLOBULIN) SOLUTION FOR INFUSION [Suspect]
     Indication: MYELODYSPLASTIC SYNDROME
     Dosage: 1 MG/ML, ONCE, INTRAVENOUS; 2.5 MG/M2, QD, INTRAVENOUS
     Route: 042
     Dates: start: 20080320, end: 20080320
  4. THYMOGLOBULINE (ANTITHYMOCYTE IMMUNOGLOBULIN) SOLUTION FOR INFUSION [Suspect]
     Indication: MYELODYSPLASTIC SYNDROME
     Dosage: 1 MG/ML, ONCE, INTRAVENOUS; 2.5 MG/M2, QD, INTRAVENOUS
     Route: 042
     Dates: start: 20080321, end: 20080322
  5. NORVASC (AMLODIPINE) UNKNOWN [Concomitant]
  6. CEFEPIME (CEFEPIME) UNKNOWN [Concomitant]
  7. NEXIUM (ESOMEPRAZOLE MAGNESIUM) UNKNOWN [Concomitant]
  8. FLUCONAZOLE [Concomitant]
  9. FLONASE (FLUTICASONE PROPIONATE) UNKNOWN [Concomitant]
  10. COMPAZINE (PROCHLORPERAZINE EDISYLATE) UNKNOWN [Concomitant]
  11. LASIX [Concomitant]
  12. METOPROLOL (HYDROCHLOROTHIAZIDE) UNKNOWN [Concomitant]
  13. FLAGYL (METRONIDAZOLE) UNKNOWN [Concomitant]
  14. TACROLIMUS [Concomitant]
  15. FLOMAX (MORNIFLUMATE) UNKNOWN [Concomitant]
  16. AMBIEN [Concomitant]
  17. VALACICLOVIR (VALACICLOVIR) UNKNOWN [Concomitant]
  18. VANCOMYCIN [Concomitant]
  19. LORAZAEPAM (LORAZEPAM) UNKNOWN [Concomitant]
  20. MAGNESIUM SULFATE (MAGNESIUM SULFATE) UNKNOWN [Concomitant]
  21. MORPHINE [Concomitant]

REACTIONS (6)
  - BLOOD URIC ACID INCREASED [None]
  - DIARRHOEA [None]
  - LIVER FUNCTION TEST ABNORMAL [None]
  - OEDEMA [None]
  - PERICARDIAL EFFUSION [None]
  - RASH [None]
